FAERS Safety Report 8173747-1 (Version None)
Quarter: 2012Q1

REPORT INFORMATION
  Report Type: 
  Country: None (occurrence: None)
  Receive Date: 20120229
  Receipt Date: 20110901
  Transmission Date: 20120608
  Serious: No
  Sender: FDA-Public Use
  Company Number: US-ABBOTT-11P-163-0834434-00

PATIENT
  Sex: Male
  Weight: 124.85 kg

DRUGS (14)
  1. DEPAKENE [Suspect]
     Dates: start: 20110603
  2. GLYBURIDE [Concomitant]
     Indication: DIABETES MELLITUS
     Dosage: 5 MG IN AM AND 2.5 MG IN EVENING
  3. DEPAKENE [Suspect]
     Indication: BIPOLAR DISORDER
  4. DEPAKENE [Suspect]
  5. CARVEDILOL [Concomitant]
     Indication: HYPERTENSION
  6. SYNTHROID [Concomitant]
     Indication: HYPOTHYROIDISM
  7. CLARITIN [Concomitant]
     Indication: SEASONAL ALLERGY
  8. FLONASE [Concomitant]
     Indication: ASTHMA
  9. JANUVIA [Concomitant]
     Indication: DIABETES MELLITUS
  10. ASPIRIN [Concomitant]
     Indication: PRODUCT USED FOR UNKNOWN INDICATION
  11. ZOCOR [Concomitant]
     Indication: BLOOD CHOLESTEROL INCREASED
  12. DEPAKENE [Suspect]
  13. ABILIFY [Concomitant]
     Indication: BIPOLAR DISORDER
  14. KAYEXALATE [Concomitant]
     Indication: BLOOD POTASSIUM INCREASED

REACTIONS (3)
  - DRUG LEVEL DECREASED [None]
  - DRUG LEVEL INCREASED [None]
  - TREMOR [None]
